FAERS Safety Report 9002742 (Version 1)
Quarter: 2013Q1

REPORT INFORMATION
  Report Type: Spontaneous
  Country: US (occurrence: US)
  Receive Date: 20130107
  Receipt Date: 20130107
  Transmission Date: 20140127
  Serious: Yes (Life-Threatening, Hospitalization, Other)
  Sender: FDA-Public Use
  Company Number: US-GLAXOSMITHKLINE-A0997330A

PATIENT
  Age: 30 Year
  Sex: Female
  Weight: 109.1 kg

DRUGS (12)
  1. BENLYSTA [Suspect]
     Indication: SYSTEMIC LUPUS ERYTHEMATOSUS
     Dosage: 183MG SINGLE DOSE
     Route: 042
     Dates: start: 20121003
  2. METHOTREXATE [Concomitant]
  3. FOLIC ACID [Concomitant]
  4. PLAQUENIL [Concomitant]
  5. LABETALOL [Concomitant]
  6. HYDROCHLOROTHIAZIDE [Concomitant]
  7. BENAZEPRIL [Concomitant]
  8. ZOCOR [Concomitant]
  9. PRILOSEC [Concomitant]
  10. ASPIRIN [Concomitant]
  11. FOSAMAX [Concomitant]
  12. IBUPROFEN [Concomitant]

REACTIONS (1)
  - Anaphylactic reaction [Unknown]
